FAERS Safety Report 20570877 (Version 1)
Quarter: 2022Q1

REPORT INFORMATION
  Report Type: Spontaneous
  Country: US (occurrence: US)
  Receive Date: 20220309
  Receipt Date: 20220309
  Transmission Date: 20220423
  Serious: Yes (Other)
  Sender: FDA-Public Use
  Company Number: US-BAUSCH-BL-2022-005955

PATIENT
  Age: 48 Year
  Sex: Male

DRUGS (2)
  1. WELLBUTRIN XL [Suspect]
     Active Substance: BUPROPION HYDROCHLORIDE
     Indication: Anxiety
     Route: 048
     Dates: end: 2022
  2. WELLBUTRIN XL [Suspect]
     Active Substance: BUPROPION HYDROCHLORIDE
     Indication: Depression

REACTIONS (14)
  - Choking [Unknown]
  - Withdrawal syndrome [Unknown]
  - Pharyngeal swelling [Unknown]
  - Cough [Not Recovered/Not Resolved]
  - Throat tightness [Unknown]
  - Nervousness [Unknown]
  - Mental disorder [Unknown]
  - Asthenia [Unknown]
  - Bipolar disorder [Unknown]
  - Anxiety [Unknown]
  - Panic attack [Unknown]
  - Therapy interrupted [Unknown]
  - Product storage error [Unknown]
  - Product odour abnormal [Unknown]

NARRATIVE: CASE EVENT DATE: 20220101
